FAERS Safety Report 13989110 (Version 2)
Quarter: 2017Q4

REPORT INFORMATION
  Report Type: Report from Study
  Country: JP (occurrence: JP)
  Receive Date: 20170920
  Receipt Date: 20171114
  Transmission Date: 20180321
  Serious: Yes (Death, Other)
  Sender: FDA-Public Use
  Company Number: JP-AMGEN-JPNNI2017142539

PATIENT
  Age: 80 Year
  Sex: Male

DRUGS (9)
  1. DEXAMETHASONE. [Concomitant]
     Active Substance: DEXAMETHASONE
     Dosage: 4 MG, UNK
     Dates: start: 20161206
  2. CARFILZOMIB [Suspect]
     Active Substance: CARFILZOMIB
     Dosage: 15.6 MG/M2, UNK
     Route: 041
     Dates: start: 20161212, end: 20161213
  3. DEXAMETHASONE. [Concomitant]
     Active Substance: DEXAMETHASONE
     Dosage: 24 MG, UNK
     Dates: start: 20161205
  4. CARFILZOMIB [Suspect]
     Active Substance: CARFILZOMIB
     Indication: PLASMA CELL MYELOMA
     Dosage: 12 MG/M2, UNK
     Route: 041
     Dates: start: 20161205, end: 20161206
  5. CARFILZOMIB [Suspect]
     Active Substance: CARFILZOMIB
     Dosage: 15.6 MG/M2, UNK
     Route: 041
     Dates: start: 20161219, end: 20161220
  6. LENALIDOMIDE [Concomitant]
     Active Substance: LENALIDOMIDE
     Dosage: UNK
     Dates: start: 20161205, end: 20161220
  7. DEXAMETHASONE. [Concomitant]
     Active Substance: DEXAMETHASONE
     Dosage: 24 MG, UNK
     Dates: start: 20161219
  8. DEXAMETHASONE. [Concomitant]
     Active Substance: DEXAMETHASONE
     Dosage: 24 MG, UNK
     Dates: start: 20161212
  9. DEXAMETHASONE. [Concomitant]
     Active Substance: DEXAMETHASONE
     Dosage: 4 MG, UNK
     Dates: start: 20161213

REACTIONS (1)
  - Pneumonia staphylococcal [Fatal]
